FAERS Safety Report 4907818-7 (Version None)
Quarter: 2006Q1

REPORT INFORMATION
  Report Type: 
  Country: None (occurrence: None)
  Receive Date: 20060210
  Receipt Date: 20060131
  Transmission Date: 20060701
  Serious: Yes (Hospitalization)
  Sender: FDA-Public Use
  Company Number: JP-JNJFOC-20051105663

PATIENT
  Sex: Female
  Weight: 48 kg

DRUGS (19)
  1. REMICADE [Suspect]
     Indication: CROHN'S DISEASE
     Route: 042
  2. LEUKERIN [Concomitant]
     Indication: CROHN'S DISEASE
     Route: 048
  3. PENTASA [Concomitant]
     Indication: CROHN'S DISEASE
     Route: 048
  4. ALFAROL [Concomitant]
     Dosage: DOSE:  0.5 RG
     Route: 048
  5. EPADEL [Concomitant]
     Dosage: FOR IMPROVEMENT OF BLOOD FLOW
     Route: 048
  6. ENTERONON-R [Concomitant]
     Route: 048
  7. ENTERONON-R [Concomitant]
     Route: 048
  8. ENTERONON-R [Concomitant]
     Route: 048
  9. ENTERONON-R [Concomitant]
     Route: 048
  10. ENTERONON-R [Concomitant]
     Route: 048
  11. HYPEN [Concomitant]
     Indication: PAIN
     Route: 048
  12. GASTER [Concomitant]
     Indication: ANTACID THERAPY
     Route: 048
  13. MINOCYCLINE HCL [Concomitant]
     Route: 048
  14. LENDORMIN [Concomitant]
     Indication: INSOMNIA
     Route: 048
  15. FERROMIA [Concomitant]
     Route: 048
  16. PANSPORIN [Concomitant]
     Indication: CANDIDA SEPSIS
     Route: 042
  17. FESIN [Concomitant]
  18. ELENTAL [Concomitant]
  19. ELENTAL [Concomitant]
     Indication: CROHN'S DISEASE
     Dosage: PARENTERAL NUTRITION

REACTIONS (9)
  - CANDIDA SEPSIS [None]
  - CATHETER RELATED INFECTION [None]
  - LIVER DISORDER [None]
  - LUNG NEOPLASM [None]
  - MYCOPLASMA SEROLOGY POSITIVE [None]
  - PNEUMONIA [None]
  - SEPTIC EMBOLUS [None]
  - SOMNOLENCE [None]
  - SUBCLAVIAN VEIN THROMBOSIS [None]
